FAERS Safety Report 23594590 (Version 1)
Quarter: 2024Q1

REPORT INFORMATION
  Report Type: Spontaneous
  Country: FR (occurrence: FR)
  Receive Date: 20240305
  Receipt Date: 20240305
  Transmission Date: 20240410
  Serious: Yes (Other)
  Sender: FDA-Public Use
  Company Number: None

PATIENT
  Age: 86 Year
  Sex: Female
  Weight: 59 kg

DRUGS (21)
  1. LOVENOX [Suspect]
     Active Substance: ENOXAPARIN SODIUM
     Indication: Thrombosis
     Dosage: UNK
     Dates: start: 20240130
  2. FLUINDIONE [Suspect]
     Active Substance: FLUINDIONE
     Indication: Thrombosis
     Dosage: 30 MG, QD
     Dates: end: 20240110
  3. FLUINDIONE [Suspect]
     Active Substance: FLUINDIONE
     Dosage: 30 MG
     Dates: start: 20240115, end: 20240118
  4. FLUINDIONE [Suspect]
     Active Substance: FLUINDIONE
     Dosage: 20 MG, QD
     Dates: start: 20240110, end: 20240115
  5. FLUINDIONE [Suspect]
     Active Substance: FLUINDIONE
     Dosage: 35 MG
     Dates: start: 20240118, end: 20240129
  6. ACETAMINOPHEN [Concomitant]
     Active Substance: ACETAMINOPHEN
     Dosage: 3000MG,QD
  7. NORMACOL [SODIUM PHOSPHATE DIBASIC;SODIUM PHOSPHATE DIBASIC DODECAHYDR [Concomitant]
     Dosage: 1 DF, PRN
  8. ANASTROZOLE [Concomitant]
     Active Substance: ANASTROZOLE
     Dosage: 1 MG, QD
  9. POTASSIUM BITARTRATE\SODIUM BICARBONATE [Concomitant]
     Active Substance: POTASSIUM BITARTRATE\SODIUM BICARBONATE
     Dosage: 1 DF, PRN
  10. SPIRONOLACTONE [Concomitant]
     Active Substance: SPIRONOLACTONE
     Dosage: 25MG,QD
  11. NOVORAPID [Concomitant]
     Active Substance: INSULIN ASPART
     Dosage: 3 DF, QD
  12. POLYETHYLENE GLYCOLS [Concomitant]
     Active Substance: POLYETHYLENE GLYCOLS
     Dosage: 1 DF
  13. DAPAGLIFLOZIN [Concomitant]
     Active Substance: DAPAGLIFLOZIN
     Dosage: 10 MG, QD
  14. METFORMIN HYDROCHLORIDE [Concomitant]
     Active Substance: METFORMIN HYDROCHLORIDE
     Dosage: 1700 MG, QD
  15. LEVOTHYROXINE [Concomitant]
     Active Substance: LEVOTHYROXINE\LEVOTHYROXINE SODIUM
     Dosage: 88 UG, QD
  16. BENFLUOREX [Concomitant]
     Active Substance: BENFLUOREX
     Dosage: 3 DF, QD
  17. PANTOPRAZOLE [Concomitant]
     Active Substance: PANTOPRAZOLE
     Dosage: 20 MG, QD
  18. SITAGLIPTIN [Concomitant]
     Active Substance: SITAGLIPTIN
     Dosage: 100 MG, QD
  19. AUGMENTIN [Concomitant]
     Active Substance: AMOXICILLIN\CLAVULANATE POTASSIUM
     Dosage: 3000 MG, QD
     Dates: end: 20240202
  20. INSULIN GLARGINE [Concomitant]
     Active Substance: INSULIN GLARGINE
     Dosage: 6 IU, PRN
  21. DIGOXIN [Concomitant]
     Active Substance: DIGOXIN
     Dosage: 0.13 MG, QD

REACTIONS (1)
  - Bronchial haemorrhage [Not Recovered/Not Resolved]

NARRATIVE: CASE EVENT DATE: 20240205
